FAERS Safety Report 12554744 (Version 1)
Quarter: 2016Q3

REPORT INFORMATION
  Report Type: Spontaneous
  Country: AU (occurrence: AU)
  Receive Date: 20160713
  Receipt Date: 20160713
  Transmission Date: 20161109
  Serious: Yes (Other)
  Sender: FDA-Public Use
  Company Number: AU-BAUSCH-BL-2016-016789

PATIENT
  Age: 47 Year
  Sex: Female

DRUGS (4)
  1. IRBESARTAN. [Concomitant]
     Active Substance: IRBESARTAN
     Indication: HYPERTENSION
  2. CIPROFLOXACIN 0.3 PERCENT [Concomitant]
     Indication: KERATITIS
     Dosage: RIGHT EYE
     Route: 047
  3. HOMATROPINE 2 PERCENT [Concomitant]
     Indication: KERATITIS
     Dosage: RIGHT EYE 2 DAYS POST-PRESENTATION
     Route: 047
  4. TOBRAMYCIN 0.3 PERCENT [Suspect]
     Active Substance: TOBRAMYCIN
     Indication: KERATITIS
     Dosage: RIGHT EYE 2 DAYS POST-PRESENTATION
     Route: 047

REACTIONS (7)
  - Eye irritation [Recovered/Resolved]
  - Keratic precipitates [None]
  - Hyphaema [None]
  - Corneal epithelium defect [None]
  - Actinomyces test positive [None]
  - Corneal oedema [None]
  - Nocardia test positive [None]
